FAERS Safety Report 4832194-8 (Version None)
Quarter: 2005Q4

REPORT INFORMATION
  Report Type: 
  Country: None (occurrence: None)
  Receive Date: 20051115
  Receipt Date: 20051110
  Transmission Date: 20060501
  Serious: Yes (Disabling, Other)
  Sender: FDA-Public Use
  Company Number: 200510853BVD

PATIENT
  Age: 68 Year
  Sex: Male

DRUGS (1)
  1. LEVITRA [Suspect]
     Indication: ERECTILE DYSFUNCTION
     Dosage: 5 MG, TOTAL DAILY, ORAL
     Route: 048
     Dates: start: 20050401

REACTIONS (5)
  - ARTERIAL OCCLUSIVE DISEASE [None]
  - BLINDNESS [None]
  - LIPOPROTEIN (A) INCREASED [None]
  - OCULAR VASCULAR DISORDER [None]
  - OPTIC ISCHAEMIC NEUROPATHY [None]
